FAERS Safety Report 18978140 (Version 3)
Quarter: 2021Q4

REPORT INFORMATION
  Report Type: Report from Study
  Country: KR (occurrence: KR)
  Receive Date: 20210307
  Receipt Date: 20211029
  Transmission Date: 20220304
  Serious: Yes (Hospitalization)
  Sender: FDA-Public Use
  Company Number: KR-SAMSUNG BIOEPIS-SB-2021-05690

PATIENT
  Age: 59 Year
  Sex: Female
  Weight: 49.4 kg

DRUGS (9)
  1. TRASTUZUMAB [Suspect]
     Active Substance: TRASTUZUMAB
     Indication: Breast cancer
     Dosage: FREQUENCY: 1
     Route: 065
     Dates: start: 20200616, end: 20200616
  2. PERTUZUMAB [Suspect]
     Active Substance: PERTUZUMAB
     Indication: Breast cancer
     Dosage: FREQUENCY: 1
     Route: 042
     Dates: start: 20200616
  3. PERTUZUMAB [Suspect]
     Active Substance: PERTUZUMAB
     Dosage: FREQUENCY: 1
     Route: 042
     Dates: start: 20200616
  4. DOCETAXEL [Suspect]
     Active Substance: DOCETAXEL
     Indication: Breast cancer
     Dosage: FREQUENCY: 1
     Route: 042
     Dates: start: 20200616
  5. DOCETAXEL [Suspect]
     Active Substance: DOCETAXEL
     Dosage: FREQUENCY: 1
     Route: 042
     Dates: start: 20200616
  6. CARBOPLATIN [Suspect]
     Active Substance: CARBOPLATIN
     Indication: Product used for unknown indication
     Dosage: UNKNOWN
     Route: 065
  7. PERJETA [Suspect]
     Active Substance: PERTUZUMAB
     Indication: Product used for unknown indication
     Dosage: UNKNOWN
     Route: 065
  8. DOXORUBICIN [Concomitant]
     Active Substance: DOXORUBICIN
     Indication: Adjuvant therapy
     Dosage: UNKNOWN
     Route: 065
  9. CYCLOPHOSPHAMIDE [Concomitant]
     Active Substance: CYCLOPHOSPHAMIDE
     Indication: Adjuvant therapy
     Dosage: UNKNOWN
     Route: 065

REACTIONS (4)
  - Shock [Recovered/Resolved]
  - Febrile neutropenia [Recovered/Resolved]
  - Diarrhoea [Recovered/Resolved]
  - Cardiac disorder [Recovering/Resolving]

NARRATIVE: CASE EVENT DATE: 20200623
